FAERS Safety Report 23080498 (Version 1)
Quarter: 2023Q4

REPORT INFORMATION
  Report Type: Spontaneous
  Country: GR (occurrence: GR)
  Receive Date: 20231018
  Receipt Date: 20231018
  Transmission Date: 20240110
  Serious: Yes (Other)
  Sender: FDA-Public Use
  Company Number: GR-JAZZ PHARMACEUTICALS-2023-GR-020429

PATIENT
  Age: 49 Year
  Sex: Male
  Weight: 147 kg

DRUGS (2)
  1. MIDOSTAURIN [Suspect]
     Active Substance: MIDOSTAURIN
     Indication: Acute myeloid leukaemia
     Dosage: UNK
     Route: 065
  2. MIDOSTAURIN [Suspect]
     Active Substance: MIDOSTAURIN
     Dosage: UNK
     Route: 065
     Dates: start: 20230414

REACTIONS (3)
  - Neutropenic colitis [Unknown]
  - Bacteraemia [Unknown]
  - Lower respiratory tract infection [Unknown]
